FAERS Safety Report 9026085 (Version 1)
Quarter: 2012Q4

REPORT INFORMATION
  Report Type: Spontaneous
  Country: US (occurrence: None)
  Receive Date: 20121214
  Receipt Date: 20121214
  Transmission Date: 20130627
  Serious: Yes (Hospitalization)
  Sender: FDA-Public Use
  Company Number: None

PATIENT
  Age: 64 Year
  Sex: Male
  Weight: 112.7 kg

DRUGS (1)
  1. AMLODIPINE [Suspect]
     Route: 048
     Dates: start: 20101206, end: 20121006

REACTIONS (2)
  - Angioedema [None]
  - Respiratory depression [None]
